FAERS Safety Report 5736669-9 (Version None)
Quarter: 2008Q2

REPORT INFORMATION
  Report Type: 
  Country: None (occurrence: None)
  Receive Date: 20080513
  Receipt Date: 20080501
  Transmission Date: 20081010
  Serious: Yes (Other)
  Sender: FDA-Public Use
  Company Number: US-PFIZER INC-2008018543

PATIENT
  Sex: Female
  Weight: 77.3 kg

DRUGS (2)
  1. CHANTIX [Suspect]
     Indication: SMOKING CESSATION THERAPY
     Route: 048
     Dates: start: 20080121, end: 20080129
  2. DRUG, UNSPECIFIED [Concomitant]

REACTIONS (14)
  - ARTHRALGIA [None]
  - ARTHROPATHY [None]
  - BLOOD CHOLESTEROL INCREASED [None]
  - BLOOD SODIUM DECREASED [None]
  - BLOOD TEST ABNORMAL [None]
  - C-REACTIVE PROTEIN INCREASED [None]
  - FRACTURE [None]
  - INFLAMMATION [None]
  - JOINT STIFFNESS [None]
  - LOW DENSITY LIPOPROTEIN INCREASED [None]
  - LYMPHOCYTE COUNT DECREASED [None]
  - NEUTROPHIL COUNT INCREASED [None]
  - PARALYSIS [None]
  - RED BLOOD CELL SEDIMENTATION RATE INCREASED [None]
